FAERS Safety Report 13389579 (Version 6)
Quarter: 2018Q4

REPORT INFORMATION
  Report Type: Spontaneous
  Country: GB (occurrence: GB)
  Receive Date: 20170330
  Receipt Date: 20181218
  Transmission Date: 20190204
  Serious: Yes (Death, Hospitalization, Other)
  Sender: FDA-Public Use
  Company Number: GB-PFIZER INC-2017131865

PATIENT
  Age: 35 Year
  Sex: Female
  Weight: 141 kg

DRUGS (25)
  1. CLOZAPINE. [Suspect]
     Active Substance: CLOZAPINE
     Indication: POST-TRAUMATIC STRESS DISORDER
     Dosage: 12.5 MG, BID
     Dates: start: 20140909, end: 20140909
  2. CLOZAPINE. [Suspect]
     Active Substance: CLOZAPINE
     Indication: ANTISOCIAL PERSONALITY DISORDER
     Dosage: 25 MG, BID
     Dates: start: 20140910, end: 20140911
  3. CLOZAPINE. [Suspect]
     Active Substance: CLOZAPINE
     Dosage: 250 MG, 1X/DAY
     Dates: start: 20140920, end: 20140920
  4. HYDROXYZINE HCL [Suspect]
     Active Substance: HYDROXYZINE HYDROCHLORIDE
     Dosage: UNK
  5. LITHIUM CARBONATE. [Suspect]
     Active Substance: LITHIUM CARBONATE
     Dosage: UNK
     Dates: start: 20141002, end: 201410
  6. ATRACURIUM BESILATE [Suspect]
     Active Substance: ATRACURIUM BESYLATE
     Dosage: UNK
  7. CLOZAPINE. [Suspect]
     Active Substance: CLOZAPINE
     Dosage: 175 MG, 1X/DAY
     Dates: start: 20140917, end: 20140917
  8. CLOZAPINE. [Suspect]
     Active Substance: CLOZAPINE
     Indication: PERSONALITY DISORDER
     Dosage: 12.5 MG, 1X/DAY (QD)
     Dates: start: 20140908, end: 20140908
  9. CLOZAPINE. [Suspect]
     Active Substance: CLOZAPINE
     Indication: PSYCHOTIC DISORDER
     Dosage: 75 MG, 1X/DAY
     Dates: start: 20140912, end: 20140913
  10. CLOZAPINE. [Suspect]
     Active Substance: CLOZAPINE
     Dosage: 75 MG, BID
     Dates: start: 20140916, end: 20140916
  11. CLOZAPINE. [Suspect]
     Active Substance: CLOZAPINE
     Dosage: 200 MG, 1X/DAY
     Dates: start: 20140918, end: 20140918
  12. CLOZAPINE. [Suspect]
     Active Substance: CLOZAPINE
     Dosage: 325 MG, DAILY
     Dates: start: 20140922, end: 20140928
  13. CLOZAPINE. [Suspect]
     Active Substance: CLOZAPINE
     Dosage: 25 MG, UNK
     Dates: start: 20140930, end: 20141002
  14. CHLORPHENAMINE MALEATE/DEXTROMETHORPHAN HBR/PSEUDOEPHEDRINE HCL [Suspect]
     Active Substance: CHLORPHENIRAMINE MALEATE\DEXTROMETHORPHAN HYDROBROMIDE\PSEUDOEPHEDRINE HYDROCHLORIDE
  15. CLOZAPINE. [Suspect]
     Active Substance: CLOZAPINE
     Dosage: 125 MG, 1X/DAY
     Dates: start: 20140915
  16. CLOZAPINE. [Suspect]
     Active Substance: CLOZAPINE
     Dosage: 225 MG, 1X/DAY
     Dates: start: 20140919, end: 20140919
  17. CLOZAPINE. [Suspect]
     Active Substance: CLOZAPINE
     Dosage: 50 MG, BID
     Dates: start: 20140914, end: 20140914
  18. MIDAZOLAM [Suspect]
     Active Substance: MIDAZOLAM HYDROCHLORIDE
     Dosage: UNK
  19. CLOZAPINE. [Suspect]
     Active Substance: CLOZAPINE
     Dosage: 75 MG, 2X/DAY
     Dates: start: 20140921, end: 20140921
  20. CLOZAPINE. [Suspect]
     Active Substance: CLOZAPINE
     Dosage: 100 MG, QD
     Dates: start: 20140929, end: 20140930
  21. CETIRIZINE [Suspect]
     Active Substance: CETIRIZINE HYDROCHLORIDE
     Dosage: UNK
  22. TRIMETHOPRIM. [Suspect]
     Active Substance: TRIMETHOPRIM
     Dosage: UNK
  23. FENTANYL. [Suspect]
     Active Substance: FENTANYL
     Dosage: UNK
     Dates: start: 201409
  24. CLOZAPINE. [Suspect]
     Active Substance: CLOZAPINE
     Dosage: 250 MG, QD
     Dates: start: 20140929
  25. ZUCLOPENTHIXOL [Suspect]
     Active Substance: ZUCLOPENTHIXOL
     Dosage: UNK

REACTIONS (19)
  - Malaise [Unknown]
  - Neutropenic sepsis [Fatal]
  - Subarachnoid haemorrhage [Unknown]
  - Multiple organ dysfunction syndrome [Fatal]
  - Oropharyngeal pain [Unknown]
  - Acute respiratory distress syndrome [Fatal]
  - Pneumocystis jirovecii pneumonia [Fatal]
  - Cardiac arrest [Unknown]
  - Infection [Unknown]
  - Agitation [Unknown]
  - Blood urea increased [Fatal]
  - Inflammation [Unknown]
  - Dizziness [Unknown]
  - Constipation [Unknown]
  - Myelodysplastic syndrome [Fatal]
  - Tonsillar hypertrophy [Unknown]
  - Refusal of treatment by patient [Unknown]
  - Bone marrow failure [Fatal]
  - Subdural haemorrhage [Unknown]

NARRATIVE: CASE EVENT DATE: 2014
